FAERS Safety Report 9510218 (Version 2)
Quarter: 2013Q3

REPORT INFORMATION
  Report Type: Spontaneous
  Country: US (occurrence: US)
  Receive Date: 20130909
  Receipt Date: 20130909
  Transmission Date: 20140515
  Serious: No
  Sender: FDA-Public Use
  Company Number: US-BRISTOL-MYERS SQUIBB COMPANY-18704684

PATIENT
  Age: 79 Year
  Sex: Male
  Weight: 102.04 kg

DRUGS (3)
  1. ABILIFY TABS 2 MG [Suspect]
     Indication: DEPRESSION
     Route: 048
     Dates: start: 20130319, end: 20130414
  2. PROZAC [Suspect]
     Indication: DEPRESSION
     Dosage: 20YRS
  3. XANAX [Concomitant]

REACTIONS (4)
  - Abdominal discomfort [Unknown]
  - Eructation [Unknown]
  - Weight increased [Unknown]
  - Abnormal dreams [Unknown]
